FAERS Safety Report 20237467 (Version 3)
Quarter: 2022Q1

REPORT INFORMATION
  Report Type: Spontaneous
  Country: JP (occurrence: JP)
  Receive Date: 20211228
  Receipt Date: 20220208
  Transmission Date: 20220423
  Serious: Yes (Other)
  Sender: FDA-Public Use
  Company Number: JP-MLMSERVICE-20211214-3271943-1

PATIENT
  Age: 67 Year
  Sex: Female

DRUGS (5)
  1. EPIRUBICIN HYDROCHLORIDE [Suspect]
     Active Substance: EPIRUBICIN HYDROCHLORIDE
     Indication: Breast cancer stage II
     Dosage: 400 MG/M2, CYCLIC (100 MG/M^2 EVERY 3 WEEKS FOR FOUR CYCLES)
  2. FLUOROURACIL [Suspect]
     Active Substance: FLUOROURACIL
     Indication: Breast cancer stage II
     Dosage: 2000 MG/M2, CYCLIC (500 MG/M^2 EVERY 3 WEEKS FOR FOUR CYCLES)
  3. PEGFILGRASTIM [Suspect]
     Active Substance: PEGFILGRASTIM
     Indication: Breast cancer stage II
     Dosage: UNK, CYCLIC(4 CYCLES)
  4. CYCLOPHOSPHAMIDE [Suspect]
     Active Substance: CYCLOPHOSPHAMIDE
     Indication: Breast cancer stage II
     Dosage: 2000 MG/M2, CYCLIC (500 MG/M^2 EVERY 3 WEEKS FOR FOUR CYCLES)
  5. DOCETAXEL [Concomitant]
     Active Substance: DOCETAXEL
     Indication: Breast cancer stage II
     Dosage: 225 MG/M2, CYCLIC (75MG/M^2 EVERY 3 WEEKS FOR 3 CYCLES)

REACTIONS (1)
  - Interstitial lung disease [Recovered/Resolved]
